FAERS Safety Report 19306788 (Version 3)
Quarter: 2022Q1

REPORT INFORMATION
  Report Type: Spontaneous
  Country: US (occurrence: US)
  Receive Date: 20210526
  Receipt Date: 20220222
  Transmission Date: 20220423
  Serious: No
  Sender: FDA-Public Use
  Company Number: US-PFIZER INC-2021218699

PATIENT
  Age: 78 Year
  Sex: Male

DRUGS (7)
  1. PROCARDIA XL [Suspect]
     Active Substance: NIFEDIPINE
     Dosage: 30 MG, 2X/DAY
     Route: 048
     Dates: start: 20171219, end: 201801
  2. CATAPRES [Suspect]
     Active Substance: CLONIDINE HYDROCHLORIDE
     Dosage: 0.1 MG, 2X/DAY
     Route: 048
  3. AMLODIPINE BESYLATE [Concomitant]
     Active Substance: AMLODIPINE BESYLATE
     Indication: Hypertension
     Dosage: 10 MG
     Dates: start: 200712
  4. AMLODIPINE BESYLATE [Concomitant]
     Active Substance: AMLODIPINE BESYLATE
     Dosage: 5 MG
     Dates: start: 20170912
  5. BENAZEPRIL [Concomitant]
     Active Substance: BENAZEPRIL HYDROCHLORIDE
     Indication: Hypertension
     Dosage: 100 MG
     Dates: start: 20170912
  6. BENAZEPRIL [Concomitant]
     Active Substance: BENAZEPRIL HYDROCHLORIDE
     Dosage: 10 MG
  7. BENAZEPRIL [Concomitant]
     Active Substance: BENAZEPRIL HYDROCHLORIDE
     Dosage: 40 MG

REACTIONS (20)
  - Feeling abnormal [Unknown]
  - Mean cell volume increased [Unknown]
  - Mean cell haemoglobin increased [Unknown]
  - Blood sodium increased [Unknown]
  - Blood potassium increased [Unknown]
  - Blood chloride increased [Unknown]
  - Blood calcium increased [Unknown]
  - Low density lipoprotein increased [Unknown]
  - Red blood cell sedimentation rate increased [Unknown]
  - Lymphocyte count decreased [Unknown]
  - High density lipoprotein decreased [Unknown]
  - Hypertension [Unknown]
  - Neoplasm skin [Unknown]
  - Blood glucose increased [Unknown]
  - Haematocrit increased [Unknown]
  - Eosinophil percentage increased [Unknown]
  - Off label use [Unknown]
  - Gingival hypertrophy [Unknown]
  - Malaise [Unknown]
  - Pain [Unknown]

NARRATIVE: CASE EVENT DATE: 20171227
